FAERS Safety Report 6409240-3 (Version None)
Quarter: 2009Q4

REPORT INFORMATION
  Report Type: 
  Country: None (occurrence: None)
  Receive Date: 20091021
  Receipt Date: 20091006
  Transmission Date: 20100525
  Serious: No
  Sender: FDA-Public Use
  Company Number: US-BIOGENIDEC-2009BI029955

PATIENT
  Age: 44 Year
  Sex: Female

DRUGS (1)
  1. TYSABRI [Suspect]
     Indication: MULTIPLE SCLEROSIS
     Route: 042
     Dates: start: 20071101

REACTIONS (9)
  - ARTHROPATHY [None]
  - DIZZINESS [None]
  - GAIT DISTURBANCE [None]
  - HYPOAESTHESIA FACIAL [None]
  - JOINT STIFFNESS [None]
  - MULTIPLE SCLEROSIS RELAPSE [None]
  - OEDEMA PERIPHERAL [None]
  - PAIN [None]
  - TREMOR [None]
